FAERS Safety Report 20032654 (Version 1)
Quarter: 2021Q4

REPORT INFORMATION
  Report Type: Spontaneous
  Country: US (occurrence: US)
  Receive Date: 20211103
  Receipt Date: 20211103
  Transmission Date: 20220303
  Serious: No
  Sender: FDA-Public Use
  Company Number: US-UCBSA-2021048348

PATIENT
  Age: 48 Year
  Sex: Female

DRUGS (22)
  1. CETIRIZINE HYDROCHLORIDE [Suspect]
     Active Substance: CETIRIZINE HYDROCHLORIDE
     Indication: Paraesthesia
     Dosage: UNK
     Route: 065
  2. CETIRIZINE HYDROCHLORIDE [Suspect]
     Active Substance: CETIRIZINE HYDROCHLORIDE
     Indication: Angioedema
  3. CETIRIZINE HYDROCHLORIDE [Suspect]
     Active Substance: CETIRIZINE HYDROCHLORIDE
     Indication: Pharyngeal swelling
  4. CETIRIZINE HYDROCHLORIDE [Suspect]
     Active Substance: CETIRIZINE HYDROCHLORIDE
     Indication: Swollen tongue
  5. ACETAMINOPHEN [Suspect]
     Active Substance: ACETAMINOPHEN
     Indication: Injection site pain
     Dosage: UNK
     Route: 065
  6. XYZAL [Suspect]
     Active Substance: LEVOCETIRIZINE DIHYDROCHLORIDE
     Indication: Paraesthesia
     Dosage: UNK
  7. XYZAL [Suspect]
     Active Substance: LEVOCETIRIZINE DIHYDROCHLORIDE
     Indication: Angioedema
  8. XYZAL [Suspect]
     Active Substance: LEVOCETIRIZINE DIHYDROCHLORIDE
     Indication: Pharyngeal swelling
  9. XYZAL [Suspect]
     Active Substance: LEVOCETIRIZINE DIHYDROCHLORIDE
     Indication: Swollen tongue
  10. ALLEGRA [Suspect]
     Active Substance: FEXOFENADINE HYDROCHLORIDE
     Indication: Paraesthesia
     Dosage: UNK
  11. ALLEGRA [Suspect]
     Active Substance: FEXOFENADINE HYDROCHLORIDE
     Indication: Angioedema
  12. ALLEGRA [Suspect]
     Active Substance: FEXOFENADINE HYDROCHLORIDE
     Indication: Pharyngeal swelling
  13. ALLEGRA [Suspect]
     Active Substance: FEXOFENADINE HYDROCHLORIDE
     Indication: Swollen tongue
  14. FAMOTIDINE [Suspect]
     Active Substance: FAMOTIDINE
     Indication: Product used for unknown indication
     Dosage: UNK
  15. PREDNISONE [Suspect]
     Active Substance: PREDNISONE
     Indication: Paraesthesia
     Dosage: UNK
  16. PREDNISONE [Suspect]
     Active Substance: PREDNISONE
     Indication: Angioedema
  17. PREDNISONE [Suspect]
     Active Substance: PREDNISONE
     Indication: Pharyngeal swelling
  18. PREDNISONE [Suspect]
     Active Substance: PREDNISONE
     Indication: Swollen tongue
  19. LORATADINE [Suspect]
     Active Substance: LORATADINE
     Indication: Paraesthesia
     Dosage: UNK
  20. LORATADINE [Suspect]
     Active Substance: LORATADINE
     Indication: Angioedema
  21. LORATADINE [Suspect]
     Active Substance: LORATADINE
     Indication: Pharyngeal swelling
  22. LORATADINE [Suspect]
     Active Substance: LORATADINE
     Indication: Swollen tongue

REACTIONS (4)
  - Paraesthesia [Unknown]
  - Headache [Unknown]
  - Adverse drug reaction [Unknown]
  - Product use in unapproved indication [Unknown]
